FAERS Safety Report 5010062-9 (Version None)
Quarter: 2006Q2

REPORT INFORMATION
  Report Type: 
  Country: None (occurrence: None)
  Receive Date: 20060524
  Receipt Date: 20060517
  Transmission Date: 20061013
  Serious: Yes (Hospitalization)
  Sender: FDA-Public Use
  Company Number: US-BOEHRINGER INGELHEIM PHARMACEUTICALS, INC.-2006-BP-05767BP

PATIENT
  Sex: Male

DRUGS (8)
  1. SPIRIVA [Suspect]
     Indication: CHRONIC OBSTRUCTIVE PULMONARY DISEASE
     Route: 055
  2. DIGITEK [Concomitant]
  3. SPIRONOLACTONE [Concomitant]
  4. TORSEMIDE [Concomitant]
  5. LOPRESSOR [Concomitant]
  6. ISOSORBIDE [Concomitant]
  7. PREVACID [Concomitant]
  8. DUONEB [Concomitant]

REACTIONS (3)
  - GASTRIC DISORDER [None]
  - HEART RATE INCREASED [None]
  - THROAT IRRITATION [None]
